FAERS Safety Report 25418602 (Version 1)
Quarter: 2025Q2

REPORT INFORMATION
  Report Type: Spontaneous
  Country: US (occurrence: None)
  Receive Date: 20250610
  Receipt Date: 20250610
  Transmission Date: 20250717
  Serious: Yes (Hospitalization)
  Sender: FDA-CTU
  Company Number: None

PATIENT
  Age: 34 Year
  Sex: Male
  Weight: 90.3 kg

DRUGS (1)
  1. METHIMAZOLE [Suspect]
     Active Substance: METHIMAZOLE
     Indication: Graves^ disease
     Dates: start: 20250201, end: 20250609

REACTIONS (3)
  - Agranulocytosis [None]
  - Bacteraemia [None]
  - Streptococcus test positive [None]

NARRATIVE: CASE EVENT DATE: 20250609
